FAERS Safety Report 19493456 (Version 3)
Quarter: 2022Q1

REPORT INFORMATION
  Report Type: Other
  Country: FR (occurrence: None)
  Receive Date: 20210705
  Receipt Date: 20220104
  Transmission Date: 20220423
  Serious: Yes (Other)
  Sender: FDA-Public Use
  Company Number: FR-ROCHE-2861407

PATIENT

DRUGS (3)
  1. OBINUTUZUMAB [Suspect]
     Active Substance: OBINUTUZUMAB
     Indication: Follicular lymphoma
     Dosage: ON DAY (D) 1, 8 AND 15 OF CYCLE (C) 1 AND ON D1 FROM C2 TO C8 EVERY 3 WEEKS.
     Route: 042
  2. ATEZOLIZUMAB [Suspect]
     Active Substance: ATEZOLIZUMAB
     Indication: Follicular lymphoma
     Dosage: STARTED AT D2 OF C1, THEN ADMINISTERED AT D2 OF EACH CYCLE FOR 24 CYCLES.
     Route: 042
  3. VENETOCLAX [Suspect]
     Active Substance: VENETOCLAX
     Indication: Follicular lymphoma
     Dosage: STARTING ON D8C1 FOR 24 CYCLES.
     Route: 048

REACTIONS (5)
  - Neutropenia [Unknown]
  - Thrombocytopenia [Unknown]
  - Lymphopenia [Unknown]
  - Autoimmune colitis [Unknown]
  - Febrile neutropenia [Unknown]
